FAERS Safety Report 7321632-7 (Version None)
Quarter: 2011Q1

REPORT INFORMATION
  Report Type: 
  Country: None (occurrence: None)
  Receive Date: 20110228
  Receipt Date: 20100929
  Transmission Date: 20110831
  Serious: No
  Sender: FDA-Public Use
  Company Number: A0884022A

PATIENT
  Age: 65 Year
  Sex: Female

DRUGS (3)
  1. ATENOLOL [Concomitant]
  2. VALTREX [Suspect]
     Dosage: 1G PER DAY
     Route: 048
     Dates: start: 20100201
  3. HYDROCHLOROTHIAZIDE [Concomitant]

REACTIONS (1)
  - PARAESTHESIA ORAL [None]
